FAERS Safety Report 21499457 (Version 1)
Quarter: 2022Q4

REPORT INFORMATION
  Report Type: Spontaneous
  Country: US (occurrence: US)
  Receive Date: 20221024
  Receipt Date: 20221024
  Transmission Date: 20230112
  Serious: No
  Sender: FDA-Public Use
  Company Number: US-ALKERMES INC.-ALK-2022-004820

PATIENT
  Age: 61 Year
  Sex: Female
  Weight: 65.76 kg

DRUGS (3)
  1. VIVITROL [Suspect]
     Active Substance: NALTREXONE
     Indication: Alcoholism
     Dosage: 380 MILLIGRAM, QMO
     Route: 030
     Dates: start: 20220923
  2. ALBUTEROL SULFATE [Concomitant]
     Active Substance: ALBUTEROL SULFATE
     Indication: Asthma
     Dosage: UNKNOWN DOSE, INHALATION USE
  3. OTHER DRUGS FOR OBSTRUCTIVE AIRWAY DISEASES, INHALANTS [Concomitant]
     Indication: Asthma
     Dosage: UNKNOWN DOSE, INHALATION USE

REACTIONS (7)
  - Gait disturbance [None]
  - Nausea [Unknown]
  - Fatigue [Unknown]
  - Injection site reaction [Unknown]
  - Injection site mass [Unknown]
  - Injection site induration [Unknown]
  - Injection site pain [Unknown]

NARRATIVE: CASE EVENT DATE: 20220925
